FAERS Safety Report 5593937-1 (Version None)
Quarter: 2008Q1

REPORT INFORMATION
  Report Type: 
  Country: None (occurrence: None)
  Receive Date: 20080114
  Receipt Date: 20080104
  Transmission Date: 20080703
  Serious: Yes (Disabling)
  Sender: FDA-Public Use
  Company Number: OSCN-NO-0801L-0014

PATIENT
  Age: 34 Year
  Sex: Female

DRUGS (11)
  1. OMNISCAN [Suspect]
     Indication: SHUNT STENOSIS
     Dosage: SEVERAL DOSES, EACH OF 20 ML, OVER A SIX-YEAR PERIOD, SINGLE DOSE,
  2. GADOPENTETATE DIMEGLUMINE (MAGNEVIST) [Concomitant]
  3. DARBEPOETIN ALFA [Concomitant]
  4. FERRIOXIDE SACCHARATE [Concomitant]
  5. NADROPARIN [Concomitant]
  6. FENTANYL [Concomitant]
  7. DICLOFENAC [Concomitant]
  8. MACROGOL WITH ELECTROLYTES [Concomitant]
  9. PANTOPRAZOLE [Concomitant]
  10. CLOPIDOGREL [Concomitant]
  11. POLYSTYRENE SULFONIC ACID [Concomitant]

REACTIONS (3)
  - ANTINUCLEAR ANTIBODY POSITIVE [None]
  - JOINT CONTRACTURE [None]
  - NEPHROGENIC SYSTEMIC FIBROSIS [None]
